FAERS Safety Report 6875372-9 (Version None)
Quarter: 2010Q3

REPORT INFORMATION
  Report Type: 
  Country: None (occurrence: None)
  Receive Date: 20100727
  Receipt Date: 20100715
  Transmission Date: 20110219
  Serious: Yes (Other)
  Sender: FDA-Public Use
  Company Number: SE-JNJFOC-20100406260

PATIENT
  Age: 29 Year
  Sex: Female

DRUGS (13)
  1. REMICADE [Suspect]
     Indication: COLITIS ULCERATIVE
     Route: 042
  2. REMICADE [Suspect]
     Dosage: 2ND INFUSION
     Route: 042
  3. REMICADE [Suspect]
     Route: 042
  4. PREDNISOLONE [Concomitant]
     Indication: PROPHYLAXIS
  5. TAVEGYL [Concomitant]
     Indication: PROPHYLAXIS
  6. ALVEDON [Concomitant]
     Indication: PROPHYLAXIS
  7. BETAPRED [Concomitant]
  8. SINGULAIR [Concomitant]
  9. FOLIC ACID [Concomitant]
  10. BEHEPAN [Concomitant]
  11. MYCOSTATIN [Concomitant]
  12. OMEPRAZOLE [Concomitant]
  13. SYMBICORT [Concomitant]

REACTIONS (6)
  - ANAPHYLACTIC REACTION [None]
  - ANXIETY [None]
  - CHEST PAIN [None]
  - DRUG EXPOSURE DURING PREGNANCY [None]
  - INFUSION RELATED REACTION [None]
  - PALPITATIONS [None]
